FAERS Safety Report 20131300 (Version 1)
Quarter: 2021Q4

REPORT INFORMATION
  Report Type: Spontaneous
  Country: US (occurrence: None)
  Receive Date: 20211130
  Receipt Date: 20211130
  Transmission Date: 20220303
  Serious: Yes (Death, Hospitalization, Other)
  Sender: FDA-Public Use
  Company Number: None

PATIENT
  Age: 79 Year
  Sex: Male
  Weight: 74.25 kg

DRUGS (1)
  1. ERLEADA [Suspect]
     Active Substance: APALUTAMIDE
     Indication: Prostate cancer
     Dates: start: 20210821, end: 20210911

REACTIONS (6)
  - Upper gastrointestinal haemorrhage [None]
  - Sudden death [None]
  - Pneumonia [None]
  - Fatigue [None]
  - Dyspnoea [None]
  - Lung consolidation [None]

NARRATIVE: CASE EVENT DATE: 20210911
